FAERS Safety Report 15128598 (Version 1)
Quarter: 2018Q3

REPORT INFORMATION
  Report Type: Report from Study
  Country: ES (occurrence: ES)
  Receive Date: 20180711
  Receipt Date: 20180711
  Transmission Date: 20181010
  Serious: Yes (Life-Threatening, Hospitalization)
  Sender: FDA-Public Use
  Company Number: ES-VELOXIS PHARMACEUTICALS, INC.-2018VELES1032

PATIENT
  Age: 59 Year
  Sex: Female

DRUGS (2)
  1. PREDNISONA [Interacting]
     Active Substance: PREDNISONE
     Indication: INTERSTITIAL LUNG DISEASE
     Dosage: 60 MG, QD
     Route: 048
     Dates: start: 201602
  2. ENVARSUS XR [Suspect]
     Active Substance: TACROLIMUS
     Indication: INTERSTITIAL LUNG DISEASE
     Dosage: 3 MG, QD
     Route: 048
     Dates: start: 20160209

REACTIONS (3)
  - Herpes zoster [Recovered/Resolved]
  - Intentional product use issue [Unknown]
  - Escherichia bacteraemia [Recovered/Resolved]

NARRATIVE: CASE EVENT DATE: 20160301
